FAERS Safety Report 14605466 (Version 4)
Quarter: 2019Q1

REPORT INFORMATION
  Report Type: Spontaneous
  Country: US (occurrence: US)
  Receive Date: 20180306
  Receipt Date: 20190111
  Transmission Date: 20190417
  Serious: No
  Sender: FDA-Public Use
  Company Number: US-INTERCEPT-PMOCA2017001532

PATIENT

DRUGS (3)
  1. OCALIVA [Suspect]
     Active Substance: OBETICHOLIC ACID
     Indication: PRIMARY BILIARY CHOLANGITIS
     Dosage: 5 MG, QD
     Route: 048
     Dates: start: 20181108
  2. OCALIVA [Suspect]
     Active Substance: OBETICHOLIC ACID
     Indication: CHRONIC HEPATITIS C
     Dosage: 5 MG, QD
     Route: 048
     Dates: start: 20171111, end: 20181011
  3. OCALIVA [Suspect]
     Active Substance: OBETICHOLIC ACID
     Indication: BILE DUCT OBSTRUCTION

REACTIONS (18)
  - Urine odour abnormal [Not Recovered/Not Resolved]
  - Tongue discomfort [Unknown]
  - Product dose omission [Unknown]
  - Meniscus injury [Recovering/Resolving]
  - Balance disorder [Recovering/Resolving]
  - Sinusitis [Unknown]
  - Arthralgia [Unknown]
  - Tremor [Unknown]
  - Depression [Unknown]
  - Tongue coated [Unknown]
  - Pruritus [Recovered/Resolved]
  - Throat irritation [Unknown]
  - Back pain [Unknown]
  - Fatigue [Not Recovered/Not Resolved]
  - Discomfort [Unknown]
  - Pneumonia [Unknown]
  - Chromaturia [Not Recovered/Not Resolved]
  - Constipation [Unknown]

NARRATIVE: CASE EVENT DATE: 2017
